FAERS Safety Report 10210099 (Version 2)
Quarter: 2014Q2

REPORT INFORMATION
  Report Type: Other
  Country: AR (occurrence: AR)
  Receive Date: 20140602
  Receipt Date: 20140624
  Transmission Date: 20141212
  Serious: Yes (Hospitalization)
  Sender: FDA-Public Use
  Company Number: AR-SHIRE-AR201402513

PATIENT
  Age: 1 Year
  Sex: Male
  Weight: 17 kg

DRUGS (1)
  1. ELAPRASE [Suspect]
     Indication: MUCOPOLYSACCHARIDOSIS II
     Dosage: 9 MG, 1X/WEEK (1.5 VIAL DILUTED IN 100 ML SALINE EVERY WEEK)
     Route: 041

REACTIONS (2)
  - Staphylococcal sepsis [Recovering/Resolving]
  - Device related sepsis [Recovering/Resolving]
